FAERS Safety Report 22208731 (Version 1)
Quarter: 2023Q2

REPORT INFORMATION
  Report Type: Spontaneous
  Country: US (occurrence: US)
  Receive Date: 20230413
  Receipt Date: 20230413
  Transmission Date: 20230721
  Serious: Yes (Hospitalization)
  Sender: FDA-Public Use
  Company Number: US-DSJP-DSU-2023-113953

PATIENT
  Age: 40 Year
  Sex: Female

DRUGS (1)
  1. ENHERTU [Suspect]
     Active Substance: FAM-TRASTUZUMAB DERUXTECAN-NXKI
     Indication: HER2 positive breast cancer
     Dosage: UNK
     Route: 042
     Dates: start: 20171117

REACTIONS (17)
  - Brain neoplasm [Unknown]
  - Gait disturbance [Unknown]
  - Balance disorder [Unknown]
  - Headache [Unknown]
  - Pigmentation disorder [Recovering/Resolving]
  - Muscle spasms [Unknown]
  - Pain [Unknown]
  - Dizziness [Unknown]
  - Diarrhoea [Unknown]
  - Palmar-plantar erythrodysaesthesia syndrome [Unknown]
  - Skin discolouration [Unknown]
  - Hypersensitivity [Unknown]
  - Cough [Unknown]
  - Alopecia [Unknown]
  - Maternal exposure during pregnancy [Unknown]
  - Cardiac disorder [Unknown]
  - Abortion induced [Unknown]

NARRATIVE: CASE EVENT DATE: 20230201
